FAERS Safety Report 10627932 (Version 2)
Quarter: 2014Q4

REPORT INFORMATION
  Report Type: Spontaneous
  Country: US (occurrence: US)
  Receive Date: 20141205
  Receipt Date: 20141205
  Transmission Date: 20150529
  Serious: Yes (Other)
  Sender: FDA-Public Use
  Company Number: US-BRISTOL-MYERS SQUIBB COMPANY-21360268

PATIENT
  Age: 34 Year
  Sex: Female

DRUGS (1)
  1. ABILIFY DISCMELT [Suspect]
     Active Substance: ARIPIPRAZOLE
     Indication: BIPOLAR DISORDER

REACTIONS (3)
  - Musculoskeletal stiffness [Unknown]
  - Diabetes mellitus [Unknown]
  - Transient ischaemic attack [Unknown]
